FAERS Safety Report 15747443 (Version 2)
Quarter: 2018Q4

REPORT INFORMATION
  Report Type: Report from Study
  Country: SG (occurrence: SG)
  Receive Date: 20181220
  Receipt Date: 20181228
  Transmission Date: 20190205
  Serious: No
  Sender: FDA-Public Use
  Company Number: SG-TAKEDA-2018TUS036155

PATIENT
  Sex: Female

DRUGS (1)
  1. BRIGATINIB [Suspect]
     Active Substance: BRIGATINIB
     Indication: TREATMENT FAILURE
     Dosage: UNK
     Route: 065
     Dates: start: 20180801, end: 20181024

REACTIONS (1)
  - Drug ineffective [Unknown]
